FAERS Safety Report 5946809-4 (Version None)
Quarter: 2008Q4

REPORT INFORMATION
  Report Type: 
  Country: None (occurrence: None)
  Receive Date: 20081110
  Receipt Date: 20081027
  Transmission Date: 20090506
  Serious: Yes (Hospitalization, Disabling)
  Sender: FDA-Public Use
  Company Number: JP-JNJFOC-20081101699

PATIENT
  Sex: Male
  Weight: 58 kg

DRUGS (13)
  1. ITRIZOLE [Suspect]
     Indication: PROPHYLAXIS
     Route: 065
     Dates: start: 20070924
  2. VELCADE [Suspect]
     Indication: MULTIPLE MYELOMA
     Route: 042
     Dates: start: 20080226
  3. THIAMINE DI SULPHIDE [Concomitant]
     Route: 065
     Dates: start: 20080308
  4. VITAMIN B (EXCEPT VITAMIN B1) [Concomitant]
     Route: 065
  5. GABAPENTIN [Concomitant]
     Route: 065
  6. ASPARA K [Concomitant]
     Route: 065
  7. EVIPROSTAT [Concomitant]
     Indication: BENIGN PROSTATIC HYPERPLASIA
     Dosage: 6 DF
     Route: 048
     Dates: start: 20070926
  8. OMEPRAL [Concomitant]
     Indication: PROPHYLAXIS
     Route: 048
     Dates: start: 20070809
  9. COTRIM [Concomitant]
     Indication: PROPHYLAXIS
     Dosage: 2 DF
     Route: 048
     Dates: start: 20071001
  10. FLIVAS [Concomitant]
     Indication: BENIGN PROSTATIC HYPERPLASIA
     Route: 048
     Dates: start: 20070920
  11. MAGMITT [Concomitant]
     Route: 048
  12. BONALON [Concomitant]
     Indication: PROPHYLAXIS
     Route: 048
     Dates: start: 20071202
  13. CALCIUM L-ASPARTATE [Concomitant]
     Indication: HYPOCALCAEMIA
     Route: 048
     Dates: start: 20071028

REACTIONS (6)
  - CHILLS [None]
  - DECREASED APPETITE [None]
  - ILEUS PARALYTIC [None]
  - NEUROPATHY PERIPHERAL [None]
  - PLATELET COUNT DECREASED [None]
  - PYREXIA [None]
